FAERS Safety Report 9081479 (Version 1)
Quarter: 2013Q1

REPORT INFORMATION
  Report Type: Report from Study
  Country: US (occurrence: US)
  Receive Date: 20130130
  Receipt Date: 20130130
  Transmission Date: 20140127
  Serious: No
  Sender: FDA-Public Use
  Company Number: US-ABBOTT-12P-163-0963888-00

PATIENT
  Age: 65 Year
  Sex: Female

DRUGS (7)
  1. HUMIRA 40 MG/0.8 ML PEN [Suspect]
     Indication: RHEUMATOID ARTHRITIS
     Dates: start: 200911, end: 201205
  2. BENICAR [Concomitant]
     Indication: BLOOD PRESSURE
     Dosage: 20MG EVERY DAY
  3. LEVOXYL [Concomitant]
     Indication: THYROIDECTOMY
     Dosage: EVERY DAY
  4. PRILOSEC OTC [Concomitant]
     Indication: GASTRIC DISORDER
     Dosage: EVERY DAY
  5. LORTAB [Concomitant]
     Indication: PAIN
  6. IBUPROFEN [Concomitant]
     Indication: PAIN
  7. CRESTOR [Concomitant]
     Indication: BLOOD CHOLESTEROL INCREASED
     Dosage: 5MG EVERY DAY

REACTIONS (3)
  - Joint swelling [Unknown]
  - Joint swelling [Not Recovered/Not Resolved]
  - Local swelling [Unknown]
